FAERS Safety Report 24755221 (Version 1)
Quarter: 2024Q4

REPORT INFORMATION
  Report Type: Spontaneous
  Country: US (occurrence: None)
  Receive Date: 20241218
  Receipt Date: 20241218
  Transmission Date: 20250115
  Serious: Yes (Hospitalization)
  Sender: Public
  Company Number: None

PATIENT
  Age: 60 Year
  Sex: Male

DRUGS (2)
  1. PALIPERIDONE PALMITATE [Suspect]
     Active Substance: PALIPERIDONE PALMITATE
     Indication: Schizophrenia
     Dosage: OTHER FREQUENCY : ONCE;?
     Route: 030
     Dates: start: 20241105, end: 20241105
  2. RISPERIDONE [Suspect]
     Active Substance: RISPERIDONE
     Dosage: FREQUENCY : TWICE A DAY;?
     Route: 048

REACTIONS (4)
  - Hypothermia [None]
  - Dizziness [None]
  - Orthostatic hypotension [None]
  - Gastroenteritis [None]

NARRATIVE: CASE EVENT DATE: 20241107
